FAERS Safety Report 10937237 (Version 2)
Quarter: 2015Q2

REPORT INFORMATION
  Report Type: Spontaneous
  Country: US (occurrence: US)
  Receive Date: 20150321
  Receipt Date: 20150525
  Transmission Date: 20150821
  Serious: No
  Sender: FDA-Public Use
  Company Number: US-JNJFOC-20130607940

PATIENT
  Age: 49 Year
  Sex: Female
  Weight: 73.26 kg

DRUGS (13)
  1. AMPYRA [Suspect]
     Active Substance: DALFAMPRIDINE
     Indication: UNEVALUABLE EVENT
     Route: 048
     Dates: start: 20130208, end: 20130220
  2. DALFAMPRIDINE [Interacting]
     Active Substance: DALFAMPRIDINE
     Indication: SPINAL MUSCULAR ATROPHY
     Route: 065
     Dates: start: 20130516
  3. AMERGE [Concomitant]
     Active Substance: NARATRIPTAN HYDROCHLORIDE
     Indication: MIGRAINE
     Dates: start: 2010
  4. DALFAMPRIDINE [Interacting]
     Active Substance: DALFAMPRIDINE
     Indication: SPINAL MUSCULAR ATROPHY
     Route: 065
     Dates: end: 20130515
  5. PROPRANOLOL HYDROCHLORIDE. [Concomitant]
     Active Substance: PROPRANOLOL HYDROCHLORIDE
     Indication: ESSENTIAL TREMOR
     Dosage: EVERY MORNING
     Route: 048
     Dates: start: 2002
  6. DALFAMPRIDINE [Interacting]
     Active Substance: DALFAMPRIDINE
     Indication: SPINAL MUSCULAR ATROPHY
     Route: 065
     Dates: start: 20130216, end: 20130220
  7. DALFAMPRIDINE [Interacting]
     Active Substance: DALFAMPRIDINE
     Indication: SPINAL MUSCULAR ATROPHY
     Route: 065
     Dates: start: 20130208, end: 20130215
  8. CHLORTRIMETON [Concomitant]
     Active Substance: CHLORPHENIRAMINE MALEATE
     Indication: MULTIPLE ALLERGIES
     Dates: start: 2009
  9. BENADRYL [Concomitant]
     Active Substance: DIPHENHYDRAMINE HYDROCHLORIDE
     Indication: INSOMNIA
     Dates: start: 20121106
  10. TOPAMAX [Suspect]
     Active Substance: TOPIRAMATE
     Indication: MIGRAINE PROPHYLAXIS
     Route: 048
     Dates: start: 20130225, end: 20130228
  11. AMPYRA [Suspect]
     Active Substance: DALFAMPRIDINE
     Indication: UNEVALUABLE EVENT
     Route: 048
     Dates: start: 20121214, end: 20130125
  12. AMPYRA [Suspect]
     Active Substance: DALFAMPRIDINE
     Indication: UNEVALUABLE EVENT
     Route: 048
     Dates: start: 20121116, end: 20121130
  13. AMPYRA [Suspect]
     Active Substance: DALFAMPRIDINE
     Indication: UNEVALUABLE EVENT
     Route: 048
     Dates: start: 20121024, end: 20121109

REACTIONS (9)
  - Headache [Recovered/Resolved]
  - Fall [Recovered/Resolved]
  - Drug interaction [Unknown]
  - Dizziness [Recovered/Resolved]
  - Insomnia [Recovered/Resolved]
  - Headache [Recovered/Resolved]
  - Decreased appetite [Recovered/Resolved]
  - Tremor [Recovered/Resolved]
  - Nausea [Recovered/Resolved]

NARRATIVE: CASE EVENT DATE: 20130208
